FAERS Safety Report 5202623-9 (Version None)
Quarter: 2006Q4

REPORT INFORMATION
  Report Type: 
  Country: None (occurrence: None)
  Receive Date: 20061018
  Receipt Date: 20050607
  Transmission Date: 20070319
  Serious: Yes (Other)
  Sender: FDA-Public Use
  Company Number: PHEH2005US06411

PATIENT
  Age: 81 Year
  Sex: Female

DRUGS (28)
  1. ZOMETA [Suspect]
     Indication: METASTASES TO BONE
     Dosage: 4 MG, MONTHLY, INTRAVENOUS
     Route: 042
     Dates: start: 20021231
  2. PREVACID [Concomitant]
  3. LIPITOR [Concomitant]
  4. MS CONTIN [Concomitant]
  5. ARIMIDEX [Concomitant]
  6. XANAX [Concomitant]
  7. LACTULOSE [Concomitant]
  8. ZOLOFT [Concomitant]
  9. MACRODANTIN [Concomitant]
  10. PREDNISONE TAB [Concomitant]
  11. VENTOLIN [Concomitant]
  12. MICRONASE [Concomitant]
  13. OYSTER SHELL CALCIUM (CALCIUM CARBONATE) [Concomitant]
  14. ASPIRIN [Concomitant]
  15. PROCARDIA XL [Concomitant]
  16. AMARYL [Concomitant]
  17. GLUCOPHAGE [Concomitant]
  18. MULTIVITAMINS, PLAIN (NO INGREDIENTS/SUBSTANCES) [Concomitant]
  19. SURFAK(DOCUSATE CALCIUM) [Concomitant]
  20. MIRALAX [Concomitant]
  21. COMPAZINE [Concomitant]
  22. DETROL [Concomitant]
  23. CODITUSS DM [Concomitant]
  24. LISINOPRIL [Concomitant]
  25. NYSTOP (NYSTATIN) [Concomitant]
  26. MIACALCIN [Concomitant]
  27. GLYBURIDE [Concomitant]
  28. LIDOCAINE/EPINEPHRINE (EPINEPHRINE, LIDOCAINE) [Concomitant]

REACTIONS (8)
  - BONE DISORDER [None]
  - DENTURE WEARER [None]
  - ERYTHEMA [None]
  - IMPAIRED HEALING [None]
  - ORAL PAIN [None]
  - STOMATITIS [None]
  - TOOTH EXTRACTION [None]
  - TOOTH FRACTURE [None]
